FAERS Safety Report 4294242-6 (Version None)
Quarter: 2004Q1

REPORT INFORMATION
  Report Type: 
  Country: None (occurrence: None)
  Receive Date: 20040211
  Receipt Date: 20040130
  Transmission Date: 20041129
  Serious: No
  Sender: FDA-Public Use
  Company Number: 04P-163-0249076-00

PATIENT
  Age: 37 Year
  Sex: Male

DRUGS (1)
  1. KALETRA [Suspect]
     Indication: CD4 LYMPHOCYTES DECREASED
     Dosage: PER ORAL
     Route: 048
     Dates: start: 20040123, end: 20040127

REACTIONS (2)
  - HAEMODIALYSIS [None]
  - NEPHRITIS INTERSTITIAL [None]
